FAERS Safety Report 13725485 (Version 1)
Quarter: 2017Q3

REPORT INFORMATION
  Report Type: Spontaneous
  Country: US (occurrence: US)
  Receive Date: 20170706
  Receipt Date: 20170706
  Transmission Date: 20171127
  Serious: Yes (Other)
  Sender: FDA-Public Use
  Company Number: None

PATIENT
  Age: 84 Year
  Sex: Female
  Weight: 45 kg

DRUGS (1)
  1. BUPRENORPHINE 20MCG/HR [Suspect]
     Active Substance: BUPRENORPHINE HYDROCHLORIDE
     Indication: PAIN
     Dosage: ?          OTHER FREQUENCY:WEEKLY;?
     Route: 062
     Dates: start: 20170701, end: 20170706

REACTIONS (7)
  - Product substitution issue [None]
  - Dizziness [None]
  - Pain [None]
  - Dyspnoea [None]
  - Urinary tract disorder [None]
  - Nausea [None]
  - Heart rate increased [None]

NARRATIVE: CASE EVENT DATE: 20170701
